FAERS Safety Report 8592136-9 (Version None)
Quarter: 2012Q3

REPORT INFORMATION
  Report Type: 
  Country: None (occurrence: None)
  Receive Date: 20120814
  Receipt Date: 20120806
  Transmission Date: 20120928
  Serious: Yes (Other)
  Sender: FDA-Public Use
  Company Number: US-BAYER-2011-027513

PATIENT
  Age: 33 Year
  Sex: Female

DRUGS (8)
  1. FEXOFENADINE [Concomitant]
     Dosage: DAILY
     Route: 048
  2. ULTRAM [Concomitant]
  3. VICODIN [Concomitant]
     Indication: PAIN
     Dosage: 7.5/325 1-2 TABS PRN
     Route: 048
  4. YAZ [Suspect]
     Indication: ACNE
     Dosage: UNK
     Dates: start: 20060101, end: 20090101
  5. YASMIN [Suspect]
     Indication: PREMENSTRUAL SYNDROME
  6. YAZ [Suspect]
     Indication: PREMENSTRUAL SYNDROME
  7. TRAMADOL HCL [Concomitant]
     Dosage: 50 MG, PRN
     Route: 048
  8. YASMIN [Suspect]
     Indication: ACNE
     Dosage: UNK
     Route: 048
     Dates: start: 20060101, end: 20090101

REACTIONS (8)
  - GENERAL PHYSICAL HEALTH DETERIORATION [None]
  - ANHEDONIA [None]
  - ANXIETY [None]
  - EMOTIONAL DISTRESS [None]
  - CHOLECYSTECTOMY [None]
  - PAIN [None]
  - INJURY [None]
  - CHOLECYSTITIS CHRONIC [None]
